FAERS Safety Report 11359676 (Version 2)
Quarter: 2015Q3

REPORT INFORMATION
  Report Type: Spontaneous
  Country: US (occurrence: US)
  Receive Date: 20150808
  Receipt Date: 20150904
  Transmission Date: 20151125
  Serious: No
  Sender: FDA-Public Use
  Company Number: PHEH2015US007705

PATIENT
  Age: 75 Year
  Sex: Male

DRUGS (1)
  1. GLEEVEC [Suspect]
     Active Substance: IMATINIB MESYLATE
     Indication: CHRONIC MYELOID LEUKAEMIA
     Dosage: 100 MG/KG, TID (THREE TIMES A DAY)
     Route: 048
     Dates: start: 20131023

REACTIONS (8)
  - Diarrhoea [Unknown]
  - Headache [Unknown]
  - Musculoskeletal chest pain [Unknown]
  - Muscle spasms [Unknown]
  - Chest pain [Recovering/Resolving]
  - Chest discomfort [Unknown]
  - Inappropriate schedule of drug administration [Unknown]
  - Dizziness [Unknown]

NARRATIVE: CASE EVENT DATE: 20150727
